FAERS Safety Report 9654214 (Version 3)
Quarter: 2013Q4

REPORT INFORMATION
  Report Type: Report from Study
  Country: VE (occurrence: VE)
  Receive Date: 20131029
  Receipt Date: 20131122
  Transmission Date: 20140711
  Serious: Yes (Other)
  Sender: FDA-Public Use
  Company Number: VE-ROCHE-1295544

PATIENT
  Age: 38 Year
  Sex: Female

DRUGS (5)
  1. XOLAIR [Suspect]
     Indication: ASTHMA
     Route: 058
     Dates: start: 201308
  2. XOLAIR [Suspect]
     Route: 058
  3. ONBRIZE [Suspect]
     Indication: ASTHMA
     Route: 050
     Dates: start: 201307
  4. MIFLONIDE [Suspect]
     Indication: ASTHMA
     Route: 065
     Dates: start: 201307
  5. MONTELUKAST SODIUM [Concomitant]
     Route: 065
     Dates: start: 201307

REACTIONS (4)
  - Asthma [Not Recovered/Not Resolved]
  - Feeling abnormal [Unknown]
  - Drug prescribing error [Unknown]
  - Drug ineffective [Unknown]
